FAERS Safety Report 10055218 (Version 1)
Quarter: 2014Q2

REPORT INFORMATION
  Report Type: Spontaneous
  Country: FI (occurrence: FI)
  Receive Date: 20140403
  Receipt Date: 20140403
  Transmission Date: 20141212
  Serious: Yes (Other)
  Sender: FDA-Public Use
  Company Number: FI-ROCHE-1375665

PATIENT
  Age: 56 Year
  Sex: Male

DRUGS (2)
  1. CELLCEPT [Suspect]
     Indication: IMMUNOSUPPRESSION
     Route: 065
     Dates: start: 201102
  2. CYCLOSPORINE A [Concomitant]
     Indication: IMMUNOSUPPRESSION
     Route: 065
     Dates: start: 201102

REACTIONS (1)
  - IgA nephropathy [Unknown]
